FAERS Safety Report 17121612 (Version 1)
Quarter: 2019Q4

REPORT INFORMATION
  Report Type: Spontaneous
  Country: US (occurrence: US)
  Receive Date: 20191205
  Receipt Date: 20191205
  Transmission Date: 20200122
  Serious: Yes (Other)
  Sender: FDA-Public Use
  Company Number: None

PATIENT
  Age: 47 Year
  Sex: Male
  Weight: 105.75 kg

DRUGS (1)
  1. BUPRENORPHINE-NALAXON 8-2MG SL [Suspect]
     Active Substance: BUPRENORPHINE\NALOXONE
     Indication: DRUG DEPENDENCE
     Dosage: ?          QUANTITY:1 TABLET(S);?
     Route: 060
     Dates: start: 20151201, end: 20191205

REACTIONS (2)
  - Product prescribing issue [None]
  - Product availability issue [None]

NARRATIVE: CASE EVENT DATE: 20191205
